FAERS Safety Report 7897030-4 (Version None)
Quarter: 2011Q4

REPORT INFORMATION
  Report Type: 
  Country: None (occurrence: None)
  Receive Date: 20111107
  Receipt Date: 20111101
  Transmission Date: 20120403
  Serious: No
  Sender: FDA-Public Use
  Company Number: US-PFIZER INC-2011223819

PATIENT
  Sex: Male
  Weight: 109 kg

DRUGS (3)
  1. ACETYLSALICYLIC ACID [Concomitant]
     Dosage: 81 MG, AS NEEDED
  2. TRANXENE [Concomitant]
     Indication: NEUROPATHY PERIPHERAL
     Dosage: 7.5 MG, AS NEEDED
     Route: 048
  3. PROTONIX [Suspect]
     Indication: GASTROOESOPHAGEAL REFLUX DISEASE
     Dosage: 40 MG, DAILY
     Route: 048
     Dates: start: 20080101

REACTIONS (1)
  - MALAISE [None]
